FAERS Safety Report 26158799 (Version 1)
Quarter: 2025Q4

REPORT INFORMATION
  Report Type: Spontaneous
  Country: EU (occurrence: EU)
  Receive Date: 20251215
  Receipt Date: 20251215
  Transmission Date: 20260117
  Serious: Yes (Other)
  Sender: NOVARTIS
  Company Number: EU-002147023-NVSC2025FR128630

PATIENT
  Age: 37 Year
  Sex: Female

DRUGS (2)
  1. PAZOPANIB [Suspect]
     Active Substance: PAZOPANIB
     Indication: Chondrosarcoma
     Dosage: 800 MG, QD (MONOTHERAPY)
     Route: 048
  2. TRABECTEDIN [Concomitant]
     Active Substance: TRABECTEDIN
     Indication: Product used for unknown indication
     Dosage: UNK (STARTED ON 5 MONTHS AFTER THE LAST RADIOTHERAPY SESSION)
     Route: 042

REACTIONS (5)
  - Chondrosarcoma [Unknown]
  - Malignant neoplasm progression [Unknown]
  - Metastases to retroperitoneum [Unknown]
  - Metastases to muscle [Unknown]
  - Off label use [Unknown]
